FAERS Safety Report 24328344 (Version 1)
Quarter: 2024Q3

REPORT INFORMATION
  Report Type: Spontaneous
  Country: US (occurrence: US)
  Receive Date: 20240917
  Receipt Date: 20240917
  Transmission Date: 20241016
  Serious: No
  Sender: AMGEN
  Company Number: US-AMGEN-USASP2024183225

PATIENT
  Age: 71 Year
  Sex: Male

DRUGS (3)
  1. PROLIA [Suspect]
     Active Substance: DENOSUMAB
     Indication: Osteoporosis
     Dosage: 60 MILLIGRAM, Q6MO
     Route: 058
     Dates: start: 2021
  2. PROLIA [Suspect]
     Active Substance: DENOSUMAB
     Indication: Osteopenia
  3. PROLIA [Suspect]
     Active Substance: DENOSUMAB
     Indication: Arthritis

REACTIONS (4)
  - Arthritis [Unknown]
  - Blood calcium increased [Unknown]
  - Vitamin D increased [Unknown]
  - Therapy interrupted [Unknown]
